FAERS Safety Report 9913289 (Version 1)
Quarter: 2014Q1

REPORT INFORMATION
  Report Type: Spontaneous
  Country: US (occurrence: None)
  Receive Date: 20140218
  Receipt Date: 20140218
  Transmission Date: 20141002
  Serious: Yes (Other)
  Sender: FDA-Public Use
  Company Number: None

PATIENT
  Age: 36 Year
  Sex: Male

DRUGS (1)
  1. ZOSYN [Suspect]
     Indication: DEVICE RELATED INFECTION
     Dosage: 4-0.5 GM
     Route: 042
     Dates: start: 20131217, end: 20140121

REACTIONS (3)
  - Urticaria [None]
  - Rash erythematous [None]
  - Pruritus [None]
